FAERS Safety Report 8104199-5 (Version None)
Quarter: 2012Q1

REPORT INFORMATION
  Report Type: 
  Country: None (occurrence: None)
  Receive Date: 20120201
  Receipt Date: 20120117
  Transmission Date: 20120608
  Serious: Yes (Hospitalization)
  Sender: FDA-Public Use
  Company Number: FR-WATSON-2012-01234

PATIENT
  Age: 49 Year
  Sex: Male

DRUGS (8)
  1. TACROLIMUS [Suspect]
     Dosage: 19 MO LATER 7-2MG/DAY X 8 MONTHS
     Route: 065
  2. PREDNISONE TAB [Suspect]
     Dosage: 1MG/KG/DAY X7 DAYS THEN DECREASE 10MG EVERY DAYS TO REACH 15/MGDAY
     Route: 048
  3. TACROLIMUS [Suspect]
     Dosage: 1 MG, DAILY (REINTRODUCED 6 MO LATER)
     Route: 065
  4. PREDNISONE TAB [Suspect]
     Indication: IMMUNOSUPPRESSION
     Dosage: UNK
     Route: 065
     Dates: start: 20070101
  5. TACROLIMUS [Suspect]
     Indication: IMMUNOSUPPRESSION
     Dosage: UNK
     Route: 065
     Dates: start: 20070101
  6. PREDNISONE TAB [Suspect]
     Dosage: 19 MONTHS LATER 10-15 MG/DAY X8 MONTHS
     Route: 065
  7. PREDNISONE TAB [Suspect]
     Dosage: 10 MG, DAILY (6 MONTHS LATER)
     Route: 048
  8. MYCOPHENOLATE MEFETIL [Suspect]
     Indication: IMMUNOSUPPRESSION
     Dosage: X19 NMONTHS
     Route: 065

REACTIONS (2)
  - MENINGITIS CRYPTOCOCCAL [None]
  - IMMUNE RECONSTITUTION SYNDROME [None]
